FAERS Safety Report 15934080 (Version 3)
Quarter: 2019Q4

REPORT INFORMATION
  Report Type: Spontaneous
  Country: US (occurrence: US)
  Receive Date: 20190207
  Receipt Date: 20191008
  Transmission Date: 20200122
  Serious: Yes (Other)
  Sender: FDA-Public Use
  Company Number: US-ASTRAZENECA-2018SF47896

PATIENT

DRUGS (17)
  1. NEXIUM [Suspect]
     Active Substance: ESOMEPRAZOLE MAGNESIUM
     Route: 048
     Dates: start: 20000101
  2. RAMIPRIL. [Concomitant]
     Active Substance: RAMIPRIL
  3. PREVACID [Suspect]
     Active Substance: LANSOPRAZOLE
     Route: 065
     Dates: start: 20000101
  4. AMLODIPINE [Concomitant]
     Active Substance: AMLODIPINE BESYLATE
  5. PRILOSEC [Suspect]
     Active Substance: OMEPRAZOLE MAGNESIUM
     Route: 048
     Dates: start: 20000101
  6. DALIRESP [Concomitant]
     Active Substance: ROFLUMILAST
  7. PREDNISONE. [Concomitant]
     Active Substance: PREDNISONE
  8. FUROSEMIDE. [Concomitant]
     Active Substance: FUROSEMIDE
  9. PREVACID [Suspect]
     Active Substance: LANSOPRAZOLE
     Route: 065
     Dates: start: 19950101, end: 19951231
  10. GABAPENTIN. [Concomitant]
     Active Substance: GABAPENTIN
  11. PRILOSEC [Suspect]
     Active Substance: OMEPRAZOLE MAGNESIUM
     Route: 048
     Dates: start: 19900101, end: 19951231
  12. CIPROFLOXACIN. [Concomitant]
     Active Substance: CIPROFLOXACIN
  13. ATORVASTATIN [Concomitant]
     Active Substance: ATORVASTATIN
  14. OXYCODONE [Concomitant]
     Active Substance: OXYCODONE
  15. HYDROCODONE BITARTRATE AND ACETAMINOPHEN [Concomitant]
     Active Substance: ACETAMINOPHEN\HYDROCODONE BITARTRATE
  16. ALLOPURINOL. [Concomitant]
     Active Substance: ALLOPURINOL
  17. PROTONIX [Suspect]
     Active Substance: PANTOPRAZOLE SODIUM
     Route: 065
     Dates: start: 20000101

REACTIONS (2)
  - Chronic kidney disease [Unknown]
  - Hyperparathyroidism secondary [Unknown]
